FAERS Safety Report 18109949 (Version 2)
Quarter: 2020Q3

REPORT INFORMATION
  Report Type: Report from Study
  Country: CA (occurrence: CA)
  Receive Date: 20200804
  Receipt Date: 20200814
  Transmission Date: 20201103
  Serious: Yes (Hospitalization)
  Sender: FDA-Public Use
  Company Number: CA-JNJFOC-20200745146

PATIENT
  Age: 40 Year
  Sex: Female
  Weight: 82 kg

DRUGS (1)
  1. REMICADE [Suspect]
     Active Substance: INFLIXIMAB
     Indication: CROHN^S DISEASE
     Dosage: WAITING FOR A NEGATIVE C. DIFFICILE RESULT IN ORDER TO SCHEDULE A NEW APPOINTMENT FOR HER TREATMENT
     Route: 042
     Dates: start: 20140429

REACTIONS (4)
  - Colonic fistula [Unknown]
  - Fistula of small intestine [Unknown]
  - Anal fistula [Unknown]
  - Clostridium difficile infection [Recovering/Resolving]

NARRATIVE: CASE EVENT DATE: 202007
